FAERS Safety Report 25427885 (Version 1)
Quarter: 2025Q2

REPORT INFORMATION
  Report Type: Spontaneous
  Country: CN (occurrence: CN)
  Receive Date: 20250612
  Receipt Date: 20250612
  Transmission Date: 20250716
  Serious: Yes (Other)
  Sender: MYLAN
  Company Number: CN-MYLANLABS-2025M1049520

PATIENT
  Age: 3 Year
  Sex: Female

DRUGS (68)
  1. MYCOPHENOLATE MOFETIL [Suspect]
     Active Substance: MYCOPHENOLATE MOFETIL
     Indication: Anti-GAD antibody positive
  2. MYCOPHENOLATE MOFETIL [Suspect]
     Active Substance: MYCOPHENOLATE MOFETIL
     Indication: Epilepsy
  3. MYCOPHENOLATE MOFETIL [Suspect]
     Active Substance: MYCOPHENOLATE MOFETIL
     Route: 065
  4. MYCOPHENOLATE MOFETIL [Suspect]
     Active Substance: MYCOPHENOLATE MOFETIL
     Route: 065
  5. MYCOPHENOLATE MOFETIL [Suspect]
     Active Substance: MYCOPHENOLATE MOFETIL
  6. MYCOPHENOLATE MOFETIL [Suspect]
     Active Substance: MYCOPHENOLATE MOFETIL
  7. MYCOPHENOLATE MOFETIL [Suspect]
     Active Substance: MYCOPHENOLATE MOFETIL
     Route: 065
  8. MYCOPHENOLATE MOFETIL [Suspect]
     Active Substance: MYCOPHENOLATE MOFETIL
     Route: 065
  9. LACOSAMIDE [Suspect]
     Active Substance: LACOSAMIDE
     Indication: Anti-GAD antibody positive
  10. LACOSAMIDE [Suspect]
     Active Substance: LACOSAMIDE
     Indication: Epilepsy
  11. LACOSAMIDE [Suspect]
     Active Substance: LACOSAMIDE
     Route: 065
  12. LACOSAMIDE [Suspect]
     Active Substance: LACOSAMIDE
     Route: 065
  13. LACOSAMIDE [Suspect]
     Active Substance: LACOSAMIDE
  14. LACOSAMIDE [Suspect]
     Active Substance: LACOSAMIDE
  15. LACOSAMIDE [Suspect]
     Active Substance: LACOSAMIDE
     Route: 065
  16. LACOSAMIDE [Suspect]
     Active Substance: LACOSAMIDE
     Route: 065
  17. LEVETIRACETAM [Suspect]
     Active Substance: LEVETIRACETAM
     Indication: Anti-GAD antibody positive
  18. LEVETIRACETAM [Suspect]
     Active Substance: LEVETIRACETAM
     Indication: Epilepsy
     Route: 065
  19. LEVETIRACETAM [Suspect]
     Active Substance: LEVETIRACETAM
     Route: 065
  20. LEVETIRACETAM [Suspect]
     Active Substance: LEVETIRACETAM
  21. RITUXIMAB [Suspect]
     Active Substance: RITUXIMAB
     Indication: Anti-GAD antibody positive
     Dosage: 750 MILLIGRAM/SQ. METER, BIWEEKLY,~TWICE IN 2 WEEKS
  22. RITUXIMAB [Suspect]
     Active Substance: RITUXIMAB
     Indication: Epilepsy
     Dosage: 750 MILLIGRAM/SQ. METER, BIWEEKLY,~TWICE IN 2 WEEKS
     Route: 065
  23. RITUXIMAB [Suspect]
     Active Substance: RITUXIMAB
     Dosage: 750 MILLIGRAM/SQ. METER, BIWEEKLY,~TWICE IN 2 WEEKS
     Route: 065
  24. RITUXIMAB [Suspect]
     Active Substance: RITUXIMAB
     Dosage: 750 MILLIGRAM/SQ. METER, BIWEEKLY,~TWICE IN 2 WEEKS
  25. METHYLPREDNISOLONE [Suspect]
     Active Substance: METHYLPREDNISOLONE
     Indication: Anti-GAD antibody positive
     Dosage: 15 MILLIGRAM/KILOGRAM, QD (PULSE FOR 5?CONTINUOUS DAYS)
  26. METHYLPREDNISOLONE [Suspect]
     Active Substance: METHYLPREDNISOLONE
     Indication: Epilepsy
     Dosage: 15 MILLIGRAM/KILOGRAM, QD (PULSE FOR 5?CONTINUOUS DAYS)
     Route: 042
  27. METHYLPREDNISOLONE [Suspect]
     Active Substance: METHYLPREDNISOLONE
     Dosage: 15 MILLIGRAM/KILOGRAM, QD (PULSE FOR 5?CONTINUOUS DAYS)
     Route: 042
  28. METHYLPREDNISOLONE [Suspect]
     Active Substance: METHYLPREDNISOLONE
     Dosage: 15 MILLIGRAM/KILOGRAM, QD (PULSE FOR 5?CONTINUOUS DAYS)
  29. METHYLPREDNISOLONE [Suspect]
     Active Substance: METHYLPREDNISOLONE
  30. METHYLPREDNISOLONE [Suspect]
     Active Substance: METHYLPREDNISOLONE
     Route: 042
  31. METHYLPREDNISOLONE [Suspect]
     Active Substance: METHYLPREDNISOLONE
  32. METHYLPREDNISOLONE [Suspect]
     Active Substance: METHYLPREDNISOLONE
     Route: 042
  33. METHYLPREDNISOLONE [Suspect]
     Active Substance: METHYLPREDNISOLONE
     Dosage: 15 MILLIGRAM/KILOGRAM, QD (PULSE REPEATED FOR 5?CONTINUOUS DAYS)
     Route: 042
  34. METHYLPREDNISOLONE [Suspect]
     Active Substance: METHYLPREDNISOLONE
     Dosage: 15 MILLIGRAM/KILOGRAM, QD (PULSE REPEATED FOR 5?CONTINUOUS DAYS)
     Route: 042
  35. METHYLPREDNISOLONE [Suspect]
     Active Substance: METHYLPREDNISOLONE
     Dosage: 15 MILLIGRAM/KILOGRAM, QD (PULSE REPEATED FOR 5?CONTINUOUS DAYS)
  36. METHYLPREDNISOLONE [Suspect]
     Active Substance: METHYLPREDNISOLONE
     Dosage: 15 MILLIGRAM/KILOGRAM, QD (PULSE REPEATED FOR 5?CONTINUOUS DAYS)
  37. PREDNISONE [Suspect]
     Active Substance: PREDNISONE
     Indication: Anti-GAD antibody positive
     Dosage: 2 MILLIGRAM/KILOGRAM, QD
  38. PREDNISONE [Suspect]
     Active Substance: PREDNISONE
     Indication: Epilepsy
     Dosage: 2 MILLIGRAM/KILOGRAM, QD
  39. PREDNISONE [Suspect]
     Active Substance: PREDNISONE
     Dosage: 2 MILLIGRAM/KILOGRAM, QD
     Route: 048
  40. PREDNISONE [Suspect]
     Active Substance: PREDNISONE
     Dosage: 2 MILLIGRAM/KILOGRAM, QD
     Route: 048
  41. PREDNISONE [Suspect]
     Active Substance: PREDNISONE
  42. PREDNISONE [Suspect]
     Active Substance: PREDNISONE
  43. PREDNISONE [Suspect]
     Active Substance: PREDNISONE
     Route: 048
  44. PREDNISONE [Suspect]
     Active Substance: PREDNISONE
     Route: 048
  45. PREDNISONE [Suspect]
     Active Substance: PREDNISONE
     Dosage: 1 MILLIGRAM/KILOGRAM, QD
  46. PREDNISONE [Suspect]
     Active Substance: PREDNISONE
     Dosage: 1 MILLIGRAM/KILOGRAM, QD
     Route: 048
  47. PREDNISONE [Suspect]
     Active Substance: PREDNISONE
     Dosage: 1 MILLIGRAM/KILOGRAM, QD
  48. PREDNISONE [Suspect]
     Active Substance: PREDNISONE
     Dosage: 1 MILLIGRAM/KILOGRAM, QD
     Route: 048
  49. IMMUNE GLOBULIN NOS [Suspect]
     Active Substance: IMMUNE GLOBULIN NOS
     Indication: Anti-GAD antibody positive
  50. IMMUNE GLOBULIN NOS [Suspect]
     Active Substance: IMMUNE GLOBULIN NOS
     Indication: Epilepsy
  51. IMMUNE GLOBULIN NOS [Suspect]
     Active Substance: IMMUNE GLOBULIN NOS
     Route: 042
  52. IMMUNE GLOBULIN NOS [Suspect]
     Active Substance: IMMUNE GLOBULIN NOS
     Route: 042
  53. IMMUNE GLOBULIN NOS [Suspect]
     Active Substance: IMMUNE GLOBULIN NOS
     Dosage: 2 GRAM PER KILOGRAM, BIMONTHLY (FOR 10 TIMES)
  54. IMMUNE GLOBULIN NOS [Suspect]
     Active Substance: IMMUNE GLOBULIN NOS
     Dosage: 2 GRAM PER KILOGRAM, BIMONTHLY (FOR 10 TIMES)
  55. IMMUNE GLOBULIN NOS [Suspect]
     Active Substance: IMMUNE GLOBULIN NOS
     Dosage: 2 GRAM PER KILOGRAM, BIMONTHLY (FOR 10 TIMES)
     Route: 042
  56. IMMUNE GLOBULIN NOS [Suspect]
     Active Substance: IMMUNE GLOBULIN NOS
     Dosage: 2 GRAM PER KILOGRAM, BIMONTHLY (FOR 10 TIMES)
     Route: 042
  57. IMMUNE GLOBULIN NOS [Suspect]
     Active Substance: IMMUNE GLOBULIN NOS
  58. IMMUNE GLOBULIN NOS [Suspect]
     Active Substance: IMMUNE GLOBULIN NOS
     Route: 042
  59. IMMUNE GLOBULIN NOS [Suspect]
     Active Substance: IMMUNE GLOBULIN NOS
  60. IMMUNE GLOBULIN NOS [Suspect]
     Active Substance: IMMUNE GLOBULIN NOS
     Route: 042
  61. TOCILIZUMAB [Concomitant]
     Active Substance: TOCILIZUMAB
     Indication: Anti-GAD antibody positive
  62. TOCILIZUMAB [Concomitant]
     Active Substance: TOCILIZUMAB
     Indication: Epilepsy
     Route: 065
  63. TOCILIZUMAB [Concomitant]
     Active Substance: TOCILIZUMAB
     Route: 065
  64. TOCILIZUMAB [Concomitant]
     Active Substance: TOCILIZUMAB
  65. CLOBAZAM [Concomitant]
     Active Substance: CLOBAZAM
     Indication: Anti-GAD antibody positive
  66. CLOBAZAM [Concomitant]
     Active Substance: CLOBAZAM
     Indication: Epilepsy
     Route: 065
  67. CLOBAZAM [Concomitant]
     Active Substance: CLOBAZAM
     Route: 065
  68. CLOBAZAM [Concomitant]
     Active Substance: CLOBAZAM

REACTIONS (2)
  - Drug ineffective for unapproved indication [Unknown]
  - Off label use [Unknown]
